FAERS Safety Report 10831797 (Version 2)
Quarter: 2015Q2

REPORT INFORMATION
  Report Type: Report from Study
  Country: US (occurrence: US)
  Receive Date: 20150219
  Receipt Date: 20150424
  Transmission Date: 20150821
  Serious: Yes (Life-Threatening, Hospitalization)
  Sender: FDA-Public Use
  Company Number: US-009507513-1502USA008355

PATIENT
  Age: 59 Year
  Sex: Male
  Weight: 68.3 kg

DRUGS (3)
  1. IDARUBICIN [Suspect]
     Active Substance: IDARUBICIN
     Indication: ACUTE MYELOID LEUKAEMIA
     Dosage: 12 MG/M2, QD (OVER 15 MIN ON DAYS 4-6, CYCLE = 28 DAYS)
     Route: 042
     Dates: start: 20150214, end: 20150214
  2. CYTARABINE. [Suspect]
     Active Substance: CYTARABINE
     Indication: ACUTE MYELOID LEUKAEMIA
     Dosage: 1500 MG/M2, QD (CONTINUOUS IV INFUSION, ON DAYS 4-7, CYCLE = 28 DAYS)
     Route: 042
     Dates: start: 20150214, end: 20150214
  3. VORINOSTAT [Suspect]
     Active Substance: VORINOSTAT
     Indication: ACUTE MYELOID LEUKAEMIA
     Dosage: 500 MG, TID (ON DAYS 1-3, CYCLE = 28 DAYS)
     Route: 048
     Dates: start: 20150210, end: 20150213

REACTIONS (4)
  - Pulmonary haemorrhage [Unknown]
  - Acute kidney injury [Recovered/Resolved]
  - Acute respiratory distress syndrome [Recovered/Resolved with Sequelae]
  - Encephalopathy [Recovered/Resolved]

NARRATIVE: CASE EVENT DATE: 20150215
